FAERS Safety Report 16087801 (Version 1)
Quarter: 2019Q1

REPORT INFORMATION
  Report Type: Spontaneous
  Country: ES (occurrence: ES)
  Receive Date: 20190319
  Receipt Date: 20190319
  Transmission Date: 20190418
  Serious: Yes (Other)
  Sender: FDA-Public Use
  Company Number: ES-JNJFOC-20190316282

PATIENT
  Age: 32 Year
  Sex: Male

DRUGS (10)
  1. IBUPROFEN. [Suspect]
     Active Substance: IBUPROFEN
     Indication: POSTOPERATIVE CARE
     Route: 065
  2. HYPERICUM PERFORATUM [Suspect]
     Active Substance: HYPERICUM PERFORATUM
     Indication: POSTOPERATIVE CARE
     Route: 065
  3. METOCLOPRAMIDE. [Suspect]
     Active Substance: METOCLOPRAMIDE
     Indication: POSTOPERATIVE CARE
     Route: 065
  4. IBUPROFEN. [Suspect]
     Active Substance: IBUPROFEN
     Route: 065
  5. METAMIZOLE [Suspect]
     Active Substance: METAMIZOLE
     Indication: POSTOPERATIVE CARE
     Route: 065
  6. PARACETAMOL [Suspect]
     Active Substance: ACETAMINOPHEN
     Indication: POSTOPERATIVE CARE
     Route: 065
  7. PASSIFLORA INCARNATA [Suspect]
     Active Substance: HERBALS\HOMEOPATHICS\PASSIFLORA INCARNATA FLOWERING TOP
     Indication: POSTOPERATIVE CARE
     Route: 065
  8. OXAZEPAM. [Suspect]
     Active Substance: OXAZEPAM
     Indication: POSTOPERATIVE CARE
     Route: 065
  9. PLANTAGO OVATA [Suspect]
     Active Substance: HERBALS\PLANTAGO OVATA LEAF
     Indication: POSTOPERATIVE CARE
     Route: 065
  10. DIMETICONE [Suspect]
     Active Substance: DIMETHICONE
     Indication: POSTOPERATIVE CARE
     Route: 065

REACTIONS (1)
  - Drug reaction with eosinophilia and systemic symptoms [Recovered/Resolved]
